FAERS Safety Report 11391515 (Version 6)
Quarter: 2015Q4

REPORT INFORMATION
  Report Type: Spontaneous
  Country: US (occurrence: US)
  Receive Date: 20150818
  Receipt Date: 20151207
  Transmission Date: 20160304
  Serious: Yes (Other)
  Sender: FDA-Public Use
  Company Number: US-SA-2015SA122193

PATIENT
  Age: 31 Year
  Sex: Male
  Weight: 74.84 kg

DRUGS (4)
  1. ICY HOT MEDICATED NO MESS APPLICATOR [Suspect]
     Active Substance: MENTHOL
     Route: 065
     Dates: start: 201507
  2. MOTRIN [Concomitant]
     Active Substance: IBUPROFEN
     Indication: PAIN
     Route: 048
  3. NORCO [Concomitant]
     Active Substance: ACETAMINOPHEN\HYDROCODONE BITARTRATE
     Indication: PAIN
     Route: 048
  4. FLEXERIL [Concomitant]
     Active Substance: CYCLOBENZAPRINE HYDROCHLORIDE
     Indication: MUSCLE SPASMS
     Route: 048

REACTIONS (7)
  - Emotional distress [Unknown]
  - Erythema [Unknown]
  - Scar [Unknown]
  - Application site burn [Unknown]
  - Discomfort [Unknown]
  - Blister [Unknown]
  - Pain [Unknown]

NARRATIVE: CASE EVENT DATE: 20150811
